FAERS Safety Report 9477405 (Version 2)
Quarter: 2013Q3

REPORT INFORMATION
  Report Type: Report from Study
  Country: CA (occurrence: CA)
  Receive Date: 20130826
  Receipt Date: 20130830
  Transmission Date: 20140515
  Serious: Yes (Death)
  Sender: FDA-Public Use
  Company Number: CA-ABBOTT-13P-028-1136404-00

PATIENT
  Sex: Male
  Weight: 92.62 kg

DRUGS (1)
  1. LUPRON DEPOT [Suspect]
     Indication: PROSTATE CANCER
     Route: 030
     Dates: start: 20110817, end: 20130419

REACTIONS (3)
  - Renal failure [Fatal]
  - Prostate cancer metastatic [Fatal]
  - Oncologic complication [Fatal]
